FAERS Safety Report 15051453 (Version 1)
Quarter: 2018Q2

REPORT INFORMATION
  Report Type: Spontaneous
  Country: US (occurrence: US)
  Receive Date: 20180622
  Receipt Date: 20180622
  Transmission Date: 20180711
  Serious: Yes (Other)
  Sender: FDA-Public Use
  Company Number: US-BAYER-2018-118163

PATIENT
  Sex: Female

DRUGS (2)
  1. MIRENA [Suspect]
     Active Substance: LEVONORGESTREL
     Dosage: 20 MCG/24HR, CONT
     Route: 015
     Dates: start: 20130827
  2. MIRENA [Suspect]
     Active Substance: LEVONORGESTREL
     Dosage: 20 MCG/24HR, CONT
     Route: 015
     Dates: start: 2006, end: 2007

REACTIONS (10)
  - Visual impairment [None]
  - Migraine [None]
  - Nausea [None]
  - Phonophobia [None]
  - Idiopathic intracranial hypertension [None]
  - Device expulsion [None]
  - Photophobia [None]
  - Memory impairment [None]
  - Idiopathic intracranial hypertension [None]
  - Vomiting [None]

NARRATIVE: CASE EVENT DATE: 2007
